FAERS Safety Report 15225681 (Version 1)
Quarter: 2018Q3

REPORT INFORMATION
  Report Type: Spontaneous
  Country: US (occurrence: US)
  Receive Date: 20180801
  Receipt Date: 20180801
  Transmission Date: 20181010
  Serious: No
  Sender: FDA-Public Use
  Company Number: US-009507513-1807USA008934

PATIENT
  Age: 26 Year
  Sex: Female

DRUGS (3)
  1. PEGINTRON [Suspect]
     Active Substance: PEGINTERFERON ALFA-2B
     Indication: GORHAM^S DISEASE
     Dosage: 120 MG, QW
  2. PROPRANOLOL [Concomitant]
     Active Substance: PROPRANOLOL HYDROCHLORIDE
     Indication: GORHAM^S DISEASE
     Dosage: 20 MG, BID
  3. ZOLEDRONIC ACID [Concomitant]
     Active Substance: ZOLEDRONIC ACID
     Indication: GORHAM^S DISEASE
     Dosage: UNK, QW

REACTIONS (1)
  - Product use in unapproved indication [Unknown]
